FAERS Safety Report 9714001 (Version 2)
Quarter: 2015Q3

REPORT INFORMATION
  Report Type: Spontaneous
  Country: US (occurrence: US)
  Receive Date: 20131126
  Receipt Date: 20150803
  Transmission Date: 20151125
  Serious: No
  Sender: FDA-Public Use
  Company Number: US-GILEAD-2008-0018498

PATIENT
  Age: 76 Year
  Sex: Male
  Weight: 125.19 kg

DRUGS (8)
  1. LETAIRIS [Suspect]
     Active Substance: AMBRISENTAN
     Indication: PULMONARY HYPERTENSION
     Route: 048
     Dates: start: 20080605
  2. LOVASTATIN. [Concomitant]
     Active Substance: LOVASTATIN
  3. DOXAZOSIN [Concomitant]
     Active Substance: DOXAZOSIN\DOXAZOSIN MESYLATE
  4. KLOR-CON M20 [Concomitant]
     Active Substance: POTASSIUM CHLORIDE
  5. WARFARIN [Concomitant]
     Active Substance: WARFARIN
  6. LISINOPRIL. [Concomitant]
     Active Substance: LISINOPRIL
  7. PRIMIDONE. [Concomitant]
     Active Substance: PRIMIDONE
  8. FUROSEMIDE. [Concomitant]
     Active Substance: FUROSEMIDE

REACTIONS (1)
  - Oedema [None]

NARRATIVE: CASE EVENT DATE: 20081003
